FAERS Safety Report 5073456-1 (Version None)
Quarter: 2006Q3

REPORT INFORMATION
  Report Type: 
  Country: None (occurrence: None)
  Receive Date: 20060803
  Receipt Date: 20060719
  Transmission Date: 20061208
  Serious: Yes (Hospitalization)
  Sender: FDA-Public Use
  Company Number: 2006S1006704

PATIENT
  Age: 40 Year
  Sex: Male
  Weight: 105.2345 kg

DRUGS (4)
  1. AMITRIPTYLINE HCL [Suspect]
     Indication: MIGRAINE PROPHYLAXIS
     Dosage: 100 MG; QD; PO
     Route: 048
     Dates: start: 20040330, end: 20040916
  2. ACETAMINOPHEN [Concomitant]
  3. MAALOX /00082501/ [Concomitant]
  4. ESOMEPRAZOLE MAGNESIUM [Concomitant]

REACTIONS (24)
  - ALCOHOLISM [None]
  - BLOOD CREATINE PHOSPHOKINASE INCREASED [None]
  - BLOOD CREATINE PHOSPHOKINASE MB INCREASED [None]
  - BLOOD CREATININE INCREASED [None]
  - BLOOD PRESSURE DECREASED [None]
  - CHEST PAIN [None]
  - DIZZINESS [None]
  - DRUG ABUSER [None]
  - DYSPNOEA [None]
  - EJECTION FRACTION DECREASED [None]
  - ELECTROCARDIOGRAM ST SEGMENT ELEVATION [None]
  - ELECTROCARDIOGRAM T WAVE INVERSION [None]
  - GASTROOESOPHAGEAL REFLUX DISEASE [None]
  - HAEMATEMESIS [None]
  - HAEMOGLOBIN DECREASED [None]
  - HEADACHE [None]
  - HYPERHIDROSIS [None]
  - HYPERTENSION [None]
  - MELAENA [None]
  - NAUSEA [None]
  - OCCULT BLOOD POSITIVE [None]
  - OESOPHAGITIS ULCERATIVE [None]
  - VENTRICULAR HYPERTROPHY [None]
  - VOMITING [None]
